FAERS Safety Report 4281161-4 (Version None)
Quarter: 2004Q1

REPORT INFORMATION
  Report Type: 
  Country: None (occurrence: None)
  Receive Date: 20040102
  Receipt Date: 20030922
  Transmission Date: 20041129
  Serious: Yes (Other)
  Sender: FDA-Public Use
  Company Number: 03-7538-1

PATIENT
  Sex: Female

DRUGS (1)
  1. AVAGARD [Suspect]
     Indication: PREOPERATIVE CARE
     Dosage: 6 ML AS NEEDED 060

REACTIONS (1)
  - ASTHMA [None]
